FAERS Safety Report 19484593 (Version 6)
Quarter: 2022Q1

REPORT INFORMATION
  Report Type: Spontaneous
  Country: IT (occurrence: IT)
  Receive Date: 20210702
  Receipt Date: 20220201
  Transmission Date: 20220423
  Serious: Yes (Death, Hospitalization, Other)
  Sender: FDA-Public Use
  Company Number: IT-CELLTRION INC.-2021IT008569

PATIENT

DRUGS (3)
  1. RITUXIMAB [Suspect]
     Active Substance: RITUXIMAB
     Indication: Thrombotic thrombocytopenic purpura
     Dosage: UNK (365 MICG/M2)
     Route: 065
  2. RITUXIMAB [Suspect]
     Active Substance: RITUXIMAB
     Dosage: 365 MG/M2
  3. PREDNISONE [Suspect]
     Active Substance: PREDNISONE
     Indication: Thrombotic thrombocytopenic purpura
     Dosage: 1 MG/KG, QD (PREDNISONE WAS GRADUALLY TAPERED)
     Route: 065

REACTIONS (20)
  - Cardiogenic shock [Fatal]
  - Cardiomyopathy [Fatal]
  - Renal impairment [Fatal]
  - Cardiac valve vegetation [Fatal]
  - Endocarditis bacterial [Fatal]
  - Endocarditis staphylococcal [Fatal]
  - Sepsis [Fatal]
  - Staphylococcal infection [Fatal]
  - Endocarditis [Fatal]
  - Staphylococcal infection [Fatal]
  - Pyrexia [Fatal]
  - Endocarditis staphylococcal [Fatal]
  - Product use in unapproved indication [Fatal]
  - Off label use [Fatal]
  - Drug effective for unapproved indication [Fatal]
  - Renal impairment [Recovered/Resolved]
  - Scleroderma renal crisis [Recovered/Resolved]
  - Haemolysis [Recovered/Resolved]
  - Anaemia [Recovered/Resolved]
  - Thrombocytopenia [Recovered/Resolved]
